FAERS Safety Report 9361350 (Version 3)
Quarter: 2013Q3

REPORT INFORMATION
  Report Type: Spontaneous
  Country: SE (occurrence: SE)
  Receive Date: 20130621
  Receipt Date: 20130723
  Transmission Date: 20140515
  Serious: Yes (Hospitalization, Other)
  Sender: FDA-Public Use
  Company Number: SE-ASTRAZENECA-2013SE42569

PATIENT
  Age: 25880 Day
  Sex: Female

DRUGS (24)
  1. PLENDIL [Suspect]
     Dosage: PLENDIL
     Route: 048
  2. PLENDIL [Suspect]
     Dosage: FELODIPINE
     Route: 048
  3. LOCOBASE LPL ASTELLAS PHARMA [Concomitant]
     Dosage: 200 MG/G+45 MG/G
  4. ALENAT VECKOTABLETT (ARROW GENERICS) [Concomitant]
  5. CITALOPRAM [Concomitant]
  6. MOXALOLE (MEDA AB) [Concomitant]
     Route: 048
  7. FOLACIN (PFIZER AB) [Concomitant]
  8. ATARAX (UCB NORDIC A/S) [Concomitant]
  9. ALVEDON (GSK CONSUMER HEA) [Concomitant]
  10. BEHEPAN (PFIZER AB) [Concomitant]
     Dosage: 1 MG/ML
  11. PRIMPERAN [Concomitant]
  12. MOLLIPECT (PFIZER AB) [Concomitant]
     Dosage: 0.5MG/ML + 1 MG/ML
     Route: 048
  13. NATRIUMBIKARBONATE (RECIP AB) [Concomitant]
  14. SELEXID (LEO PHARMA AB) [Concomitant]
  15. NOVALUZID (MEDA AB) [Concomitant]
     Route: 048
  16. LOCOID LIPID (ASTELLAS PHARMA A/S) [Concomitant]
  17. FENURIL (ACO HUD NORDIC AB) [Concomitant]
  18. SOBRIL (PFIZER AB) [Concomitant]
  19. ELOCON (MERCK SHAPR + DOHME BV) [Concomitant]
  20. ACETYLCYSTEIN [Concomitant]
  21. TRADOLAN (G.L. PHARMA GMBH) [Concomitant]
  22. NASONEX [Concomitant]
  23. XERODENT LOZENGE (ACTAVIS GROUP HF.) [Concomitant]
     Dosage: 28.6 MG / 0.25 MG
  24. NEORECORMON (ROCHE REGISTRATION LTD) [Concomitant]
     Dosage: 5000 IE

REACTIONS (4)
  - Atrial fibrillation [Unknown]
  - Fall [Unknown]
  - Hypotension [Unknown]
  - Extra dose administered [Unknown]
